FAERS Safety Report 10378642 (Version 2)
Quarter: 2014Q4

REPORT INFORMATION
  Report Type: Spontaneous
  Country: US (occurrence: US)
  Receive Date: 20140812
  Receipt Date: 20141119
  Transmission Date: 20150528
  Serious: Yes (Hospitalization)
  Sender: FDA-Public Use
  Company Number: US-BAYER-2014-118455

PATIENT
  Age: 31 Year
  Sex: Female
  Weight: 97.51 kg

DRUGS (4)
  1. MOTRIN [Concomitant]
     Active Substance: IBUPROFEN
  2. KEFLEX [Concomitant]
     Active Substance: CEPHALEXIN
  3. MIRENA [Suspect]
     Active Substance: LEVONORGESTREL
     Indication: CONTRACEPTION
     Dosage: 20 MCG/24HR, CONT
     Route: 015
     Dates: start: 20110207, end: 20130301
  4. ORTHO-NOVUM [MESTRANOL,NORETHISTERONE] [Concomitant]

REACTIONS (8)
  - Device difficult to use [None]
  - Genital haemorrhage [None]
  - Injury [None]
  - Feeling abnormal [None]
  - Uterine pain [None]
  - Device issue [None]
  - Uterine perforation [None]
  - General physical health deterioration [None]

NARRATIVE: CASE EVENT DATE: 201102
